FAERS Safety Report 12963948 (Version 1)
Quarter: 2016Q4

REPORT INFORMATION
  Report Type: Spontaneous
  Country: CA (occurrence: CA)
  Receive Date: 20161122
  Receipt Date: 20161122
  Transmission Date: 20170207
  Serious: Yes (Hospitalization)
  Sender: FDA-Public Use
  Company Number: CA-B.I. PHARMACEUTICALS,INC./RIDGEFIELD-2016-BI-077493

PATIENT
  Age: 57 Year
  Sex: Male

DRUGS (3)
  1. ASPIRIN. [Concomitant]
     Active Substance: ASPIRIN
     Indication: STENT PLACEMENT
     Route: 065
  2. PLAVIX [Concomitant]
     Active Substance: CLOPIDOGREL BISULFATE
     Indication: STENT PLACEMENT
     Route: 065
  3. PRADAXA [Suspect]
     Active Substance: DABIGATRAN ETEXILATE MESYLATE
     Indication: STENT PLACEMENT
     Route: 065

REACTIONS (7)
  - Upper gastrointestinal haemorrhage [Unknown]
  - Hypotension [Unknown]
  - Nasopharyngitis [Unknown]
  - Heart rate decreased [Recovered/Resolved]
  - Malaise [Unknown]
  - QRS axis abnormal [Unknown]
  - Cold sweat [Unknown]
